FAERS Safety Report 5474876-3 (Version None)
Quarter: 2007Q4

REPORT INFORMATION
  Report Type: 
  Country: None (occurrence: None)
  Receive Date: 20071002
  Receipt Date: 20070920
  Transmission Date: 20080405
  Serious: Yes (Other)
  Sender: FDA-Public Use
  Company Number: GB-ROCHE-521722

PATIENT
  Age: 26 Year
  Sex: Male
  Weight: 64 kg

DRUGS (3)
  1. MEFLOQUINE HYDROCHLORIDE [Suspect]
     Route: 048
     Dates: start: 20070727, end: 20070905
  2. NICOTINE [Concomitant]
     Indication: SMOKING CESSATION THERAPY
     Dosage: DOSING AMOUNT AND FREQUENCY REPORTED AS:  21 MG 24 HOURS
     Route: 062
     Dates: start: 20070716, end: 20070723
  3. UNSPECIFIED DRUG [Concomitant]
     Indication: SMOKING CESSATION THERAPY
     Dates: start: 20070723

REACTIONS (5)
  - ABNORMAL DREAMS [None]
  - ALICE IN WONDERLAND SYNDROME [None]
  - CLUMSINESS [None]
  - FREQUENT BOWEL MOVEMENTS [None]
  - MOOD SWINGS [None]
